FAERS Safety Report 10378584 (Version 2)
Quarter: 2015Q2

REPORT INFORMATION
  Report Type: Spontaneous
  Country: US (occurrence: None)
  Receive Date: 20140804
  Receipt Date: 20150424
  Transmission Date: 20150821
  Serious: Yes (Death)
  Sender: FDA-Public Use
  Company Number: 1713747-2013-99912

PATIENT
  Age: 86 Year
  Sex: Female

DRUGS (6)
  1. BICARBONATE [Concomitant]
     Active Substance: BICARBONATE ION
  2. 0.9% SODIUM CHLORIDE INJECTION [Suspect]
     Active Substance: SODIUM CHLORIDE
     Indication: CHRONIC KIDNEY DISEASE
     Route: 010
     Dates: start: 20130507
  3. FRESENIUS 2008K2 HEMODIALYSIS MACHINE [Concomitant]
  4. FRESENIUS UNKNOWN BLOODLINES [Concomitant]
  5. FRESENIUS UNKNOWN DIALYZER [Concomitant]
  6. GRANUFLO [Concomitant]
     Active Substance: ACETIC ACID\SODIUM ACETATE

REACTIONS (2)
  - Dyspnoea [None]
  - Cardio-respiratory arrest [None]

NARRATIVE: CASE EVENT DATE: 20130508
